FAERS Safety Report 15030426 (Version 1)
Quarter: 2018Q2

REPORT INFORMATION
  Report Type: Spontaneous
  Country: HR (occurrence: HR)
  Receive Date: 20180619
  Receipt Date: 20180619
  Transmission Date: 20180711
  Serious: Yes (Death, Hospitalization, Other)
  Sender: FDA-Public Use
  Company Number: GXKR2009HR03323

PATIENT
  Age: 73 Year
  Sex: Female

DRUGS (10)
  1. LORATADINE. [Suspect]
     Active Substance: LORATADINE
     Indication: ANTIALLERGIC THERAPY
     Route: 065
  2. CIPROFLOXACIN. [Suspect]
     Active Substance: CIPROFLOXACIN
     Indication: ANTIBIOTIC THERAPY
     Dosage: 400MG
     Route: 042
  3. METHYLPREDNISOLONE. [Suspect]
     Active Substance: METHYLPREDNISOLONE
     Indication: STEROID THERAPY
     Dosage: 125 MG, UNK
     Route: 042
  4. GENTAMICIN. [Suspect]
     Active Substance: GENTAMICIN
     Indication: ANTIBIOTIC THERAPY
     Route: 061
  5. CALCIUM CARBONATE. [Concomitant]
     Active Substance: CALCIUM CARBONATE
     Indication: CHRONIC KIDNEY DISEASE
     Dosage: UNK
     Route: 065
  6. FISH OIL [Suspect]
     Active Substance: FISH OIL
     Indication: TOXIC EPIDERMAL NECROLYSIS
     Route: 065
  7. FUROSEMIDE. [Suspect]
     Active Substance: FUROSEMIDE
     Indication: CHRONIC KIDNEY DISEASE
     Route: 065
  8. ACETYLSALICYLIC ACID [Concomitant]
     Active Substance: ASPIRIN
     Indication: PRODUCT USED FOR UNKNOWN INDICATION
     Dosage: UNK
     Route: 065
  9. CEFUROXIME AXETIL. [Interacting]
     Active Substance: CEFUROXIME AXETIL
     Indication: URINARY TRACT INFECTION BACTERIAL
     Dosage: 500 MG, BID
     Route: 048
  10. LISINOPRIL. [Concomitant]
     Active Substance: LISINOPRIL
     Indication: CHRONIC KIDNEY DISEASE
     Dosage: UNK
     Route: 065

REACTIONS (27)
  - Skin disorder [Fatal]
  - Skin lesion [Fatal]
  - Escherichia infection [Fatal]
  - Pyrexia [Fatal]
  - Blister [Fatal]
  - Keratitis [Fatal]
  - Hypertension [Fatal]
  - Skin exfoliation [Fatal]
  - Granulocytopenia [Fatal]
  - Gastrointestinal haemorrhage [Fatal]
  - Mouth ulceration [Fatal]
  - Body temperature increased [Fatal]
  - Malaise [Fatal]
  - Oesophagitis haemorrhagic [Fatal]
  - Sepsis [Fatal]
  - Protein total decreased [Fatal]
  - Skin oedema [Fatal]
  - Drug interaction [Fatal]
  - Arthralgia [Fatal]
  - Toxic epidermal necrolysis [Fatal]
  - Rash [Fatal]
  - Leukopenia [Fatal]
  - Death [Fatal]
  - Staphylococcal sepsis [Fatal]
  - Nikolsky^s sign [Fatal]
  - Pruritus [Fatal]
  - Multiple organ dysfunction syndrome [Fatal]
